FAERS Safety Report 5202778-6 (Version None)
Quarter: 2007Q1

REPORT INFORMATION
  Report Type: 
  Country: None (occurrence: None)
  Receive Date: 20070109
  Receipt Date: 20061227
  Transmission Date: 20070707
  Serious: Yes (Other)
  Sender: FDA-Public Use
  Company Number: US-SHR-US-2006-026507

PATIENT
  Age: 33 Year
  Sex: Female

DRUGS (3)
  1. BETASERON [Suspect]
     Indication: RELAPSING-REMITTING MULTIPLE SCLEROSIS
     Dosage: 2 MIU, EVERY 2D
     Route: 058
     Dates: start: 20060908, end: 20060911
  2. AMBIEN [Concomitant]
  3. MAXALT                                  /USA/ [Concomitant]
     Dosage: UNK, UNK

REACTIONS (3)
  - HALLUCINATION [None]
  - INSOMNIA [None]
  - RESTLESSNESS [None]
